FAERS Safety Report 17676582 (Version 2)
Quarter: 2020Q2

REPORT INFORMATION
  Report Type: Spontaneous
  Country: CN (occurrence: CN)
  Receive Date: 20200416
  Receipt Date: 20200424
  Transmission Date: 20200714
  Serious: Yes (Other)
  Sender: FDA-Public Use
  Company Number: CN-ROCHE-2582133

PATIENT
  Age: 27 Year
  Sex: Male

DRUGS (27)
  1. RITUXIMAB. [Suspect]
     Active Substance: RITUXIMAB
     Indication: BURKITT^S LYMPHOMA
     Route: 065
     Dates: start: 20080228, end: 20110529
  2. VINCRISTINE [Concomitant]
     Active Substance: VINCRISTINE
     Indication: BURKITT^S LYMPHOMA
     Dosage: DAY 1
     Route: 042
  3. PREDNISONE. [Concomitant]
     Active Substance: PREDNISONE
     Dosage: PER DAY, DAY 1-7
     Route: 042
     Dates: start: 20070326
  4. DEXAMETHASONE. [Concomitant]
     Active Substance: DEXAMETHASONE
     Indication: BURKITT^S LYMPHOMA
     Dosage: DAY 1 , DAY 5
     Route: 037
  5. METHOTREXATE. [Concomitant]
     Active Substance: METHOTREXATE
     Dosage: DAY 1
     Route: 037
     Dates: start: 20070326
  6. METHOTREXATE. [Concomitant]
     Active Substance: METHOTREXATE
     Route: 037
     Dates: start: 20071112
  7. CYTARABINE. [Concomitant]
     Active Substance: CYTARABINE
     Route: 037
     Dates: start: 20071112
  8. FOLIC ACID. [Concomitant]
     Active Substance: FOLIC ACID
     Indication: BURKITT^S LYMPHOMA
     Dosage: 12 TIMES PER COURSE
     Route: 065
     Dates: start: 20070326
  9. PREDNISONE. [Concomitant]
     Active Substance: PREDNISONE
     Dosage: PER DAY, DAY 1-7
     Route: 042
     Dates: start: 20071112
  10. VINCRISTINE [Concomitant]
     Active Substance: VINCRISTINE
     Dosage: DAY 1
     Route: 042
     Dates: start: 20070326
  11. CYTARABINE. [Concomitant]
     Active Substance: CYTARABINE
     Dosage: 50 MG/M2 PER DAY, CONTINUOUS INTRAVENOUS DRIP 12 HOURS, DAY 1-5, 3 G/M2/DAY,?CONTINUOUS INTRAVENOUS
     Route: 037
     Dates: start: 20070326
  12. CYTARABINE. [Concomitant]
     Active Substance: CYTARABINE
     Route: 037
  13. DOXORUBICIN [Concomitant]
     Active Substance: DOXORUBICIN
     Indication: BURKITT^S LYMPHOMA
     Dosage: DAY 2
     Route: 042
     Dates: start: 20070326
  14. VINCRISTINE [Concomitant]
     Active Substance: VINCRISTINE
     Dosage: DAY 1
     Route: 042
     Dates: start: 20070326
  15. CYTARABINE. [Concomitant]
     Active Substance: CYTARABINE
     Indication: BURKITT^S LYMPHOMA
     Route: 037
  16. DEXAMETHASONE. [Concomitant]
     Active Substance: DEXAMETHASONE
     Dosage: DAY 2
     Route: 037
     Dates: start: 20071112
  17. CYCLOPHOSPHAMIDE. [Concomitant]
     Active Substance: CYCLOPHOSPHAMIDE
     Dosage: PER DAY, DAY 2-4 (3 DAYS)
     Route: 042
     Dates: start: 20070326
  18. METHOTREXATE. [Concomitant]
     Active Substance: METHOTREXATE
     Dosage: HIGH DOSE 3 G /M2, INTRAVENOUS INJECTION, DAY 1, LUMBAR PUNCTURE + INTRATHECAL?INJECTION 15MG
     Route: 037
     Dates: start: 20070326
  19. DOXORUBICIN [Concomitant]
     Active Substance: DOXORUBICIN
     Dosage: PER DAY, DAY 3
     Route: 042
     Dates: start: 20071112
  20. ETOPOSIDE. [Concomitant]
     Active Substance: ETOPOSIDE
     Indication: BURKITT^S LYMPHOMA
     Dosage: PER DAY, CONTINUOUS INTRAVENOUS DRIP 2 HOURS, DAY 2-5
     Route: 042
  21. METHOTREXATE. [Concomitant]
     Active Substance: METHOTREXATE
     Indication: BURKITT^S LYMPHOMA
     Route: 037
  22. FOLIC ACID. [Concomitant]
     Active Substance: FOLIC ACID
     Dosage: 12 TIMES PER COURSE
     Route: 065
     Dates: start: 20071112
  23. ETOPOSIDE. [Concomitant]
     Active Substance: ETOPOSIDE
     Dosage: PER DAY, DAY1 -3
     Route: 042
  24. CYCLOPHOSPHAMIDE. [Concomitant]
     Active Substance: CYCLOPHOSPHAMIDE
     Indication: BURKITT^S LYMPHOMA
     Dosage: DAY 1
     Route: 042
  25. PREDNISONE. [Concomitant]
     Active Substance: PREDNISONE
     Indication: BURKITT^S LYMPHOMA
     Dosage: PER DAY, DAY 1-7
     Route: 042
  26. CYTARABINE. [Concomitant]
     Active Substance: CYTARABINE
     Route: 037
  27. DEXAMETHASONE. [Concomitant]
     Active Substance: DEXAMETHASONE
     Dosage: DAY 2 , DAY 6
     Route: 037
     Dates: start: 20070326

REACTIONS (5)
  - Pneumonia [Unknown]
  - Intentional product use issue [Unknown]
  - Off label use [Unknown]
  - Bone marrow failure [Unknown]
  - Mucosal inflammation [Unknown]
